FAERS Safety Report 5781933-0 (Version None)
Quarter: 2008Q2

REPORT INFORMATION
  Report Type: 
  Country: None (occurrence: None)
  Receive Date: 20080623
  Receipt Date: 20080617
  Transmission Date: 20081010
  Serious: Yes (Other)
  Sender: FDA-Public Use
  Company Number: B0525105A

PATIENT
  Age: 80 Year
  Sex: Female

DRUGS (3)
  1. RANITIDINE BISMUTH CITRATE [Suspect]
     Route: 065
  2. SENNA [Concomitant]
  3. ADCAL D3 [Concomitant]
     Route: 065

REACTIONS (1)
  - SPINAL FRACTURE [None]
